FAERS Safety Report 15493296 (Version 1)
Quarter: 2018Q4

REPORT INFORMATION
  Report Type: Spontaneous
  Country: ZA (occurrence: ZA)
  Receive Date: 20181012
  Receipt Date: 20181012
  Transmission Date: 20190205
  Serious: Yes (Death)
  Sender: FDA-Public Use
  Company Number: ZA-TEVA-2018-ZA-962749

PATIENT
  Age: 56 Year
  Sex: Female

DRUGS (8)
  1. BILOCOR [Suspect]
     Active Substance: BISOPROLOL FUMARATE
     Route: 065
  2. ANGELIQ [Suspect]
     Active Substance: DROSPIRENONE\ESTRADIOL
     Route: 065
  3. CALCIFEROL [ERGOCALCIFEROL] [Suspect]
     Active Substance: ERGOCALCIFEROL
     Route: 065
  4. EVOREL CONTI [Suspect]
     Active Substance: ESTRADIOL\NORETHINDRONE ACETATE
     Route: 065
  5. PREMARIN [Suspect]
     Active Substance: ESTROGENS, CONJUGATED
     Route: 065
  6. PREXUM PLUS [Suspect]
     Active Substance: PERINDOPRIL ERBUMINE
     Route: 065
  7. VUSOR [Suspect]
     Active Substance: ROSUVASTATIN CALCIUM
     Route: 065
  8. ECOTRIN [Suspect]
     Active Substance: ASPIRIN
     Route: 065

REACTIONS (1)
  - Road traffic accident [Fatal]

NARRATIVE: CASE EVENT DATE: 20180729
